FAERS Safety Report 8309041-5 (Version None)
Quarter: 2012Q2

REPORT INFORMATION
  Report Type: 
  Country: None (occurrence: None)
  Receive Date: 20120424
  Receipt Date: 20120418
  Transmission Date: 20120825
  Serious: Yes (Hospitalization, Other)
  Sender: FDA-Public Use
  Company Number: US-ELI_LILLY_AND_COMPANY-US201202007120

PATIENT
  Sex: Female

DRUGS (4)
  1. JANUVIA [Concomitant]
     Dosage: UNK
  2. HUMULIN N [Suspect]
     Indication: TYPE 2 DIABETES MELLITUS
     Dosage: 15 U, EACH MORNING
     Dates: start: 20110419
  3. HUMULIN N [Suspect]
     Dosage: 34 U, EACH EVENING
     Dates: start: 20110419
  4. METFORMIN HCL [Concomitant]
     Dosage: UNK

REACTIONS (3)
  - EXCESSIVE SKIN [None]
  - UTERINE LEIOMYOMA [None]
  - UTERINE HAEMORRHAGE [None]
